FAERS Safety Report 19194126 (Version 1)
Quarter: 2021Q2

REPORT INFORMATION
  Report Type: Spontaneous
  Country: US (occurrence: US)
  Receive Date: 20210429
  Receipt Date: 20210429
  Transmission Date: 20210717
  Serious: No
  Sender: FDA-Public Use
  Company Number: US-BAYER-2021-132729

PATIENT
  Age: 13 Year
  Sex: Female

DRUGS (1)
  1. MIRALAX [Suspect]
     Active Substance: POLYETHYLENE GLYCOL 3350
     Indication: GASTROINTESTINAL DISORDER
     Dosage: 2 DF
     Route: 048

REACTIONS (5)
  - Regurgitation [Unknown]
  - Product odour abnormal [Unknown]
  - Dysgeusia [Unknown]
  - Product prescribing issue [Unknown]
  - Product use issue [Unknown]
